FAERS Safety Report 8986775 (Version 1)
Quarter: 2012Q4

REPORT INFORMATION
  Report Type: Spontaneous
  Country: US (occurrence: None)
  Receive Date: 20121219
  Receipt Date: 20121219
  Transmission Date: 20130627
  Serious: Yes (Other)
  Sender: FDA-Public Use
  Company Number: None

PATIENT
  Age: 32 Year
  Sex: Female
  Weight: 83.92 kg

DRUGS (1)
  1. ESCITALOPRAM [Suspect]
     Indication: ANXIETY
     Route: 048
     Dates: start: 20121119, end: 20121218

REACTIONS (5)
  - Product substitution issue [None]
  - Mood altered [None]
  - Mental status changes [None]
  - Emotional disorder [None]
  - Drug ineffective [None]
